FAERS Safety Report 24887148 (Version 1)
Quarter: 2025Q1

REPORT INFORMATION
  Report Type: Report from Study
  Country: ES (occurrence: ES)
  Receive Date: 20250127
  Receipt Date: 20250127
  Transmission Date: 20250408
  Serious: Yes (Death, Other)
  Sender: AUROBINDO
  Company Number: ES-ARISTO PHARMA-ALPR-MIRT202412261

PATIENT
  Age: 72 Year
  Sex: Female

DRUGS (7)
  1. ALPRAZOLAM [Suspect]
     Active Substance: ALPRAZOLAM
     Indication: Depression
     Route: 065
  2. MIRTAZAPINE [Suspect]
     Active Substance: MIRTAZAPINE
     Indication: Depression
     Route: 065
  3. FLUOXETINE [Suspect]
     Active Substance: FLUOXETINE HYDROCHLORIDE
     Indication: Depression
     Route: 065
  4. ASENAPINE [Suspect]
     Active Substance: ASENAPINE
     Indication: Depression
     Route: 065
  5. MAPROTILINE [Suspect]
     Active Substance: MAPROTILINE
     Indication: Depression
     Route: 065
  6. VORTIOXETINE [Suspect]
     Active Substance: VORTIOXETINE
     Indication: Depression
     Route: 065
  7. AMITRIPTYLINE [Suspect]
     Active Substance: AMITRIPTYLINE
     Indication: Depression
     Route: 065

REACTIONS (6)
  - Embolic stroke [Fatal]
  - Depressed level of consciousness [Fatal]
  - Cardiac arrest [Fatal]
  - Seizure [Fatal]
  - Aspiration [Fatal]
  - Respiration abnormal [Fatal]
